FAERS Safety Report 15358831 (Version 2)
Quarter: 2018Q3

REPORT INFORMATION
  Report Type: Report from Study
  Country: US (occurrence: US)
  Receive Date: 20180906
  Receipt Date: 20180921
  Transmission Date: 20181010
  Serious: Yes (Other)
  Sender: FDA-Public Use
  Company Number: US-SHIRE-US201830462

PATIENT
  Age: 64 Year
  Sex: Female

DRUGS (2)
  1. HUMAN NORMAL IMMUNOGLOBULIN; LIQUID [Suspect]
     Active Substance: HUMAN IMMUNOGLOBULIN G
     Indication: IMMUNODEFICIENCY COMMON VARIABLE
     Dosage: 50 ML, UNK
     Route: 042
  2. HUMAN NORMAL IMMUNOGLOBULIN; LIQUID [Suspect]
     Active Substance: HUMAN IMMUNOGLOBULIN G
     Dosage: 75 UNK, UNK
     Route: 042

REACTIONS (12)
  - Adrenal androgen deficiency [Unknown]
  - Vision blurred [Unknown]
  - Contusion [Unknown]
  - Headache [Unknown]
  - Asthma [Unknown]
  - Sinus headache [Not Recovered/Not Resolved]
  - Weight increased [Unknown]
  - Bronchitis [Unknown]
  - Malaise [Unknown]
  - Gastrointestinal disorder [Unknown]
  - Blood immunoglobulin G decreased [Unknown]
  - Eye swelling [Unknown]

NARRATIVE: CASE EVENT DATE: 201807
